FAERS Safety Report 6532409-4 (Version None)
Quarter: 2010Q1

REPORT INFORMATION
  Report Type: 
  Country: None (occurrence: None)
  Receive Date: 20100108
  Receipt Date: 20100104
  Transmission Date: 20100710
  Serious: Yes (Hospitalization)
  Sender: FDA-Public Use
  Company Number: US-ELI_LILLY_AND_COMPANY-US200912004562

PATIENT
  Sex: Male

DRUGS (3)
  1. HUMALOG [Suspect]
     Indication: DIABETES MELLITUS
     Dosage: 22 U, 3/D
     Dates: start: 20080101
  2. HUMALOG [Suspect]
     Dosage: 22 U, 3/D
     Dates: start: 20091201
  3. LANTUS [Concomitant]
     Dosage: UNK, EACH EVENING

REACTIONS (3)
  - BLOOD GLUCOSE INCREASED [None]
  - CATHETERISATION CARDIAC [None]
  - DRUG DISPENSING ERROR [None]
